FAERS Safety Report 8381009-2 (Version None)
Quarter: 2012Q2

REPORT INFORMATION
  Report Type: 
  Country: None (occurrence: None)
  Receive Date: 20120523
  Receipt Date: 20120410
  Transmission Date: 20120825
  Serious: Yes (Other)
  Sender: FDA-Public Use
  Company Number: CHPA2012US004223

PATIENT
  Age: 64 Year
  Sex: Female

DRUGS (2)
  1. BENEFIBER PLUS CALCIUM WITH WHEAT DEXTRIN [Suspect]
     Indication: NUTRITIONAL SUPPORT
     Dosage: UNK, UNK
     Route: 048
     Dates: start: 20120201, end: 20120201
  2. BENEFIBER PLUS CALCIUM WITH WHEAT DEXTRIN [Suspect]
     Dosage: 4 SPOONS
     Route: 048

REACTIONS (6)
  - ACNE [None]
  - INSOMNIA [None]
  - OFF LABEL USE [None]
  - PRURITUS [None]
  - RASH GENERALISED [None]
  - HYPERSENSITIVITY [None]
